FAERS Safety Report 8192732-7 (Version None)
Quarter: 2012Q1

REPORT INFORMATION
  Report Type: 
  Country: None (occurrence: None)
  Receive Date: 20120308
  Receipt Date: 20120302
  Transmission Date: 20120608
  Serious: Yes (Other)
  Sender: FDA-Public Use
  Company Number: US-PFIZER INC-2012017390

PATIENT
  Sex: Male
  Weight: 98.25 kg

DRUGS (2)
  1. LINEZOLID [Suspect]
     Indication: SKIN BACTERIAL INFECTION
     Dosage: UNK
     Route: 042
     Dates: start: 20120113, end: 20120114
  2. OXYCODONE [Concomitant]
     Dosage: UNK
     Dates: start: 20120113

REACTIONS (1)
  - ANAPHYLACTIC REACTION [None]
